FAERS Safety Report 5504726-8 (Version None)
Quarter: 2007Q4

REPORT INFORMATION
  Report Type: 
  Country: None (occurrence: None)
  Receive Date: 20071031
  Receipt Date: 20071018
  Transmission Date: 20080405
  Serious: Yes (Other)
  Sender: FDA-Public Use
  Company Number: 17710

PATIENT
  Age: 52 Year
  Sex: Female
  Weight: 54 kg

DRUGS (9)
  1. DOXORUBICIN HCL [Suspect]
     Indication: LYMPHOMA
  2. VINCRISTINE [Suspect]
     Indication: LYMPHOMA
  3. FLUDARABINE PHOSPHATE [Suspect]
     Indication: CHRONIC LYMPHOCYTIC LEUKAEMIA
  4. CYCLIZINE [Suspect]
  5. CYCLOPHOSPHAMIDE [Suspect]
     Indication: LYMPHOMA
  6. GRANISETRON HCL [Suspect]
     Indication: LYMPHOMA
     Dosage: 3 MG QD IV
     Route: 042
     Dates: start: 20070828
  7. PREDNISONE TAB [Suspect]
     Indication: LYMPHOMA
  8. TEGRETOL [Suspect]
     Indication: EPILEPSY
     Dosage: 400 MG TID PO
     Route: 048
  9. ZOFRAN [Suspect]
     Dosage: 8 MG TID PO
     Route: 048

REACTIONS (3)
  - DRUG INTERACTION [None]
  - MALAISE [None]
  - NAUSEA [None]
